FAERS Safety Report 8364332-7 (Version None)
Quarter: 2012Q2

REPORT INFORMATION
  Report Type: 
  Country: None (occurrence: None)
  Receive Date: 20120516
  Receipt Date: 20120511
  Transmission Date: 20120825
  Serious: No
  Sender: FDA-Public Use
  Company Number: US-PFIZER INC-2012115747

PATIENT
  Sex: Female

DRUGS (3)
  1. IBUPROFEN (ADVIL) [Suspect]
     Indication: PROCEDURAL PAIN
     Dosage: UNK
     Route: 048
     Dates: start: 20120510, end: 20120511
  2. PROPRANOLOL [Concomitant]
     Indication: MIGRAINE
     Dosage: 60 MG, 2X/DAY
  3. VALIUM [Suspect]
     Indication: NERVOUSNESS
     Dosage: 5 MG, UNK
     Route: 048
     Dates: start: 20120510

REACTIONS (5)
  - MALAISE [None]
  - OVERDOSE [None]
  - DIZZINESS [None]
  - FEELING ABNORMAL [None]
  - COUGH [None]
